APPROVED DRUG PRODUCT: STATOBEX-G
Active Ingredient: PHENDIMETRAZINE TARTRATE
Strength: 35MG
Dosage Form/Route: TABLET;ORAL
Application: A085095 | Product #001
Applicant: TEVA PHARMACEUTICALS USA INC
Approved: Approved Prior to Jan 1, 1982 | RLD: No | RS: No | Type: DISCN